FAERS Safety Report 13963361 (Version 2)
Quarter: 2017Q3

REPORT INFORMATION
  Report Type: Spontaneous
  Country: AT (occurrence: AT)
  Receive Date: 20170913
  Receipt Date: 20170913
  Transmission Date: 20171128
  Serious: Yes (Other)
  Sender: FDA-Public Use
  Company Number: ALCN2009AT002958

PATIENT
  Age: 50 Year
  Sex: Female

DRUGS (4)
  1. KANAMYTREX [Suspect]
     Active Substance: KANAMYCIN SULFATE
     Indication: PRODUCT USED FOR UNKNOWN INDICATION
     Dosage: QD
     Route: 047
     Dates: start: 200704
  2. PREDNISOLONE ACETATE. [Suspect]
     Active Substance: PREDNISOLONE ACETATE
     Indication: PRODUCT USED FOR UNKNOWN INDICATION
     Dosage: QD
     Route: 047
     Dates: start: 200704
  3. DICLOFENAC SODIUM. [Suspect]
     Active Substance: DICLOFENAC SODIUM
     Indication: PRODUCT USED FOR UNKNOWN INDICATION
     Dosage: 7XD X1WK
     Route: 047
     Dates: start: 200704
  4. CIPROFLOXACIN. [Suspect]
     Active Substance: CIPROFLOXACIN
     Indication: PRODUCT USED FOR UNKNOWN INDICATION
     Dosage: Q1H
     Route: 047
     Dates: start: 200704

REACTIONS (1)
  - Endophthalmitis [Recovered/Resolved with Sequelae]
